FAERS Safety Report 18202355 (Version 1)
Quarter: 2020Q3

REPORT INFORMATION
  Report Type: Spontaneous
  Country: NL (occurrence: NL)
  Receive Date: 20200827
  Receipt Date: 20200827
  Transmission Date: 20201103
  Serious: Yes (Other)
  Sender: FDA-Public Use
  Company Number: NL-TEVA-2020-NL-1820071

PATIENT
  Age: 83 Year
  Sex: Female
  Weight: 57.7 kg

DRUGS (8)
  1. KOELZALF MET VASELINE / BRAND NAME NOT SPECIFIED [Concomitant]
     Dosage: THERAPY END DATE:ASKU
     Dates: start: 20190318
  2. COLECALCIFEROL TABLET  5600IE / BRAND NAME NOT SPECIFIED [Concomitant]
     Dosage: 5600 IU,THERAPY END DATE:ASKU
     Dates: start: 20181222
  3. METOPROLOL TABLET MGA  50MG (SUCCINAAT) / BRAND NAME NOT SPECIFIED [Concomitant]
     Dosage: 50 MILLIGRAM DAILY; THERAPY END DATE :ASKU
     Dates: start: 20181222
  4. PARACETAMOL TABLET  500MG / BRAND NAME NOT SPECIFIED [Concomitant]
     Dosage: 2000 MILLIGRAM DAILY; THERAPY END DATE :ASKU
     Dates: start: 20200713
  5. APIXABAN TABLET 2,5MG / ELIQUIS TABLET FILMOMHULD 2,5MG [Concomitant]
     Dosage: 5 MILLIGRAM DAILY; THERAPY END DATE:ASKU
     Dates: start: 20200301
  6. NORTRIPTYLINE TABLET 10MG / BRAND NAME NOT SPECIFIED [Suspect]
     Active Substance: NORTRIPTYLINE
     Indication: NEURALGIA
     Dosage: 10 MILLIGRAM DAILY;
     Dates: start: 20200720, end: 20200727
  7. FUROSEMIDE TABLET 40MG / BRAND NAME NOT SPECIFIED [Concomitant]
     Dosage: 40 MILLIGRAM DAILY; THERAPY END DATE :ASKU
     Dates: start: 20180416
  8. LOSARTAN TABLET FO  50MG / BRAND NAME NOT SPECIFIED [Concomitant]
     Dosage: 50 MILLIGRAM DAILY; THERAPY END DATE :ASKU
     Dates: start: 20180416

REACTIONS (3)
  - Dependent personality disorder [Recovered/Resolved]
  - Dyspnoea exertional [Recovered/Resolved]
  - Immobile [Recovered/Resolved]

NARRATIVE: CASE EVENT DATE: 20200723
